FAERS Safety Report 16251222 (Version 1)
Quarter: 2019Q2

REPORT INFORMATION
  Report Type: Spontaneous
  Country: US (occurrence: US)
  Receive Date: 20190426
  Receipt Date: 20190426
  Transmission Date: 20190711
  Serious: Yes (Disabling)
  Sender: FDA-Public Use
  Company Number: None

PATIENT
  Age: 64 Year
  Sex: Female
  Weight: 69.75 kg

DRUGS (8)
  1. VITAMIN D3 [Concomitant]
     Active Substance: CHOLECALCIFEROL
  2. VITAMIN C [Concomitant]
     Active Substance: ASCORBIC ACID
  3. AIMOVIG [Suspect]
     Active Substance: ERENUMAB-AOOE
     Indication: MIGRAINE
     Dosage: ?          QUANTITY:1 INJECTION(S);OTHER FREQUENCY:1 AUTOINJE 30 DAYS;OTHER ROUTE:INJECTED INTO THIGH?
  4. MAGNESIUM [Concomitant]
     Active Substance: MAGNESIUM
  5. SIMVASTATIN. [Concomitant]
     Active Substance: SIMVASTATIN
  6. MULTI [Concomitant]
  7. METHYL FOLATE [Concomitant]
  8. B6 [Concomitant]
     Active Substance: PYRIDOXINE HYDROCHLORIDE

REACTIONS (5)
  - Arthritis [None]
  - Weight increased [None]
  - Joint swelling [None]
  - Alopecia [None]
  - Arthralgia [None]

NARRATIVE: CASE EVENT DATE: 20190323
